FAERS Safety Report 16252710 (Version 2)
Quarter: 2019Q2

REPORT INFORMATION
  Report Type: Spontaneous
  Country: DK (occurrence: DK)
  Receive Date: 20190429
  Receipt Date: 20190503
  Transmission Date: 20190711
  Serious: Yes (Hospitalization)
  Sender: FDA-Public Use
  Company Number: DK-009507513-1904DNK012079

PATIENT
  Age: 81 Year
  Sex: Female

DRUGS (7)
  1. BENDROFLUMETHIAZIDE (+) POTASSIUM CHLORIDE [Concomitant]
     Indication: HYPERTENSION
     Dosage: STRENGTH: 1.25 + 573 MG
     Route: 048
     Dates: start: 20181210
  2. FORMOTEROL FUMARATE [Concomitant]
     Active Substance: FORMOTEROL FUMARATE
     Indication: ASTHMA
     Dosage: STRENGTH: 4.5 MCG DOSE: ONE (1) INHALATION, TWICE DAILY AS NECESSARY
     Route: 055
     Dates: start: 20150806
  3. ENALAPRIL [Concomitant]
     Active Substance: ENALAPRIL
     Indication: BLOOD PRESSURE MEASUREMENT
     Dosage: STRENGTH: 20 MG
     Route: 048
     Dates: start: 20181108
  4. KEYTRUDA [Suspect]
     Active Substance: PEMBROLIZUMAB
     Indication: MALIGNANT NEOPLASM OF RENAL PELVIS
     Dosage: STRENGTH: 25 MG/ML
     Route: 042
     Dates: start: 20190214, end: 2019
  5. TRAMADOL HYDROCHLORIDE. [Concomitant]
     Active Substance: TRAMADOL HYDROCHLORIDE
     Indication: PAIN
     Dosage: STRENGTH: 50 MG DOSE: 1 CAPSULE DAILY, MAXIMUM 4 TIMES DAILY
     Route: 048
     Dates: start: 20190208, end: 20190305
  6. ACETAMINOPHEN. [Concomitant]
     Active Substance: ACETAMINOPHEN
     Indication: PAIN
     Dosage: STRENGTH: 500 MG DOSE: 2 TABLETS (1000 MG) AS NECESSARY, MAXIMUM 4 TIMES DAILY
     Route: 048
     Dates: start: 20190101
  7. DOMPERIDONE [Concomitant]
     Active Substance: DOMPERIDONE
     Indication: ADVERSE DRUG REACTION
     Dosage: STRENGTH: 10 MILLIGRAMS (MG) DOSE: 1 TABLET AS NECESSARY, MAXIMUM 3 TIMES DAILY
     Route: 048
     Dates: start: 20190214

REACTIONS (6)
  - Alanine aminotransferase increased [Recovered/Resolved]
  - Blood lactate dehydrogenase [Unknown]
  - Blood alkaline phosphatase [Recovered/Resolved]
  - Aspartate aminotransferase increased [Recovered/Resolved]
  - Hepatic function abnormal [Recovered/Resolved]
  - Immune-mediated hepatitis [Recovered/Resolved]

NARRATIVE: CASE EVENT DATE: 201902
